FAERS Safety Report 20768342 (Version 1)
Quarter: 2022Q2

REPORT INFORMATION
  Report Type: Spontaneous
  Country: DE (occurrence: DE)
  Receive Date: 20220429
  Receipt Date: 20220429
  Transmission Date: 20220721
  Serious: No
  Sender: FDA-Public Use
  Company Number: None

PATIENT
  Age: 68 Year
  Sex: Male

DRUGS (15)
  1. ACYCLOVIR [Suspect]
     Active Substance: ACYCLOVIR
     Indication: Herpes zoster
     Dosage: UNK
     Route: 065
  2. GABAPENTIN [Suspect]
     Active Substance: GABAPENTIN
     Indication: Post herpetic neuralgia
     Dosage: 2400 MILLIGRAM,EVERY 1 DAY
     Route: 065
  3. GABAPENTIN [Suspect]
     Active Substance: GABAPENTIN
     Dosage: UNK
     Route: 065
  4. LIDOCAINE [Suspect]
     Active Substance: LIDOCAINE
     Indication: Post herpetic neuralgia
     Dosage: UNK
     Route: 061
  5. LIDOCAINE [Suspect]
     Active Substance: LIDOCAINE
     Dosage: UNK
     Route: 050
  6. PREGABALIN [Suspect]
     Active Substance: PREGABALIN
     Indication: Post herpetic neuralgia
     Dosage: UNK
     Route: 065
  7. CAPSAICIN [Suspect]
     Active Substance: CAPSAICIN
     Indication: Post herpetic neuralgia
     Dosage: UNK
     Route: 061
  8. DEXAMETHASONE [Suspect]
     Active Substance: DEXAMETHASONE
     Indication: Post herpetic neuralgia
     Dosage: UNK
     Route: 065
  9. HYDROMORPHONE [Suspect]
     Active Substance: HYDROMORPHONE
     Indication: Post herpetic neuralgia
     Dosage: UNK
     Route: 065
  10. TAPENTADOL [Suspect]
     Active Substance: TAPENTADOL
     Indication: Post herpetic neuralgia
     Dosage: UNK
     Route: 065
  11. AMITRIPTYLINE [Concomitant]
     Active Substance: AMITRIPTYLINE
     Indication: Post herpetic neuralgia
     Dosage: 25 MILLIGRAM
     Route: 065
  12. AMBROXOL [Concomitant]
     Active Substance: AMBROXOL
     Indication: Post herpetic neuralgia
     Route: 061
  13. DEXKETOPROFEN [Concomitant]
     Active Substance: DEXKETOPROFEN
     Indication: Post herpetic neuralgia
     Dosage: UNK
     Route: 050
  14. OXCARBAZEPINE [Concomitant]
     Active Substance: OXCARBAZEPINE
     Indication: Post herpetic neuralgia
     Dosage: UNK
     Route: 065
  15. OXCARBAZEPINE [Concomitant]
     Active Substance: OXCARBAZEPINE
     Dosage: UNK
     Route: 065

REACTIONS (9)
  - Drug ineffective [Unknown]
  - Erythema [Unknown]
  - Off label use [Unknown]
  - Burning sensation [Unknown]
  - Drug eruption [Unknown]
  - Confusional state [Unknown]
  - Fall [Unknown]
  - Constipation [Unknown]
  - Rash [Unknown]
